FAERS Safety Report 20581847 (Version 2)
Quarter: 2022Q2

REPORT INFORMATION
  Report Type: Spontaneous
  Country: US (occurrence: None)
  Receive Date: 20220311
  Receipt Date: 20220401
  Transmission Date: 20220721
  Serious: Yes (Other)
  Sender: FDA-Public Use
  Company Number: US-ROCHE-3044370

PATIENT
  Sex: Female
  Weight: 65.5 kg

DRUGS (16)
  1. XOLAIR [Suspect]
     Active Substance: OMALIZUMAB
     Indication: Urticaria
     Route: 058
     Dates: start: 20210616
  2. XOLAIR [Suspect]
     Active Substance: OMALIZUMAB
  3. XOLAIR [Suspect]
     Active Substance: OMALIZUMAB
  4. XOLAIR [Suspect]
     Active Substance: OMALIZUMAB
     Dosage: INJECT 1 UNIT INTO THE SKIN EVERY 30 DAYS
     Route: 058
     Dates: start: 20220323
  5. XOLAIR [Suspect]
     Active Substance: OMALIZUMAB
  6. XOLAIR [Suspect]
     Active Substance: OMALIZUMAB
  7. ASPIRIN [Concomitant]
     Active Substance: ASPIRIN
     Dosage: TAKE 81MG BY MOUTH DAILY
     Dates: start: 20220323
  8. LIPITOR [Concomitant]
     Active Substance: ATORVASTATIN CALCIUM
     Dosage: TAKE 40MG TABLE BY MOUTH DAILY
     Dates: start: 20220323
  9. PLAVIX [Concomitant]
     Active Substance: CLOPIDOGREL BISULFATE
     Route: 048
     Dates: start: 20220323
  10. CLIMARA [Concomitant]
     Active Substance: ESTRADIOL
     Dosage: 0.025MG/24HRS, PLACE 2 PATCHES ONTO THE SKIN ONCE A WEEK
     Dates: start: 20220323
  11. LOPRESSOR [Concomitant]
     Active Substance: METOPROLOL TARTRATE
     Dosage: TAKE 50MG BY MOUTH 2 TIMES DAILY
     Dates: start: 20220323
  12. PROTONIX [Concomitant]
     Active Substance: PANTOPRAZOLE SODIUM
     Dosage: TAKE 1 TABLET 40MG BY MOUTH DAILY
     Dates: start: 20220323
  13. DEMADEX [Concomitant]
     Active Substance: TORSEMIDE
     Dosage: TAKE 20MG BY MOUTH DAILY
     Dates: start: 20220323
  14. KLOR-CON [Concomitant]
     Active Substance: POTASSIUM CHLORIDE
     Dosage: TAKE 1 TABLET BY MOUTH DAILY
     Dates: start: 20220323
  15. DIOVAN [Concomitant]
     Active Substance: VALSARTAN
     Dosage: TAKE 40MG TABLET BY MOUTH DAILY
     Dates: start: 20220323
  16. ZESTRIL [Concomitant]
     Active Substance: LISINOPRIL

REACTIONS (1)
  - Myocardial infarction [Unknown]
